FAERS Safety Report 9060182 (Version 1)
Quarter: 2013Q1

REPORT INFORMATION
  Report Type: Spontaneous
  Country: US (occurrence: US)
  Receive Date: 20130212
  Receipt Date: 20130212
  Transmission Date: 20140127
  Serious: Yes (Hospitalization)
  Sender: FDA-Public Use
  Company Number: US-SANOFI-AVENTIS-2013SA012434

PATIENT
  Age: 61 Year
  Sex: Male

DRUGS (9)
  1. QUETIAPINE FUMARATE [Suspect]
     Indication: PRODUCT USED FOR UNKNOWN INDICATION
     Route: 065
  2. QUETIAPINE FUMARATE [Suspect]
     Indication: SUICIDE ATTEMPT
     Route: 065
  3. QUETIAPINE FUMARATE [Suspect]
     Indication: PRODUCT USED FOR UNKNOWN INDICATION
     Route: 065
  4. QUETIAPINE FUMARATE [Suspect]
     Indication: SUICIDE ATTEMPT
     Route: 065
  5. ZOLPIDEM [Suspect]
     Indication: PRODUCT USED FOR UNKNOWN INDICATION
     Route: 065
  6. ZOLPIDEM [Suspect]
     Indication: SUICIDE ATTEMPT
     Route: 065
  7. ZOLPIDEM [Suspect]
     Indication: PRODUCT USED FOR UNKNOWN INDICATION
     Route: 065
  8. ZOLPIDEM [Suspect]
     Indication: SUICIDE ATTEMPT
     Route: 065
  9. CITALOPRAM [Concomitant]

REACTIONS (10)
  - Suicide attempt [Unknown]
  - Overdose [Unknown]
  - Electrocardiogram abnormal [Recovering/Resolving]
  - Electrocardiogram ST segment elevation [Recovering/Resolving]
  - Hyperhidrosis [Unknown]
  - Miosis [Unknown]
  - Flushing [Unknown]
  - Tremor [Unknown]
  - Confusional state [Unknown]
  - Agitation [Unknown]
